FAERS Safety Report 9298150 (Version 2)
Quarter: 2013Q2

REPORT INFORMATION
  Report Type: Spontaneous
  Country: GB (occurrence: GB)
  Receive Date: 20130520
  Receipt Date: 20130612
  Transmission Date: 20140414
  Serious: Yes (Other)
  Sender: FDA-Public Use
  Company Number: GB-ASTELLAS-2013EU004296

PATIENT
  Sex: Female
  Weight: 56.6 kg

DRUGS (1)
  1. VESICARE [Suspect]
     Indication: URINARY TRACT DISORDER
     Dosage: 5 MG, UID/QD
     Route: 048
     Dates: start: 20130311

REACTIONS (2)
  - Liver disorder [Unknown]
  - Spider naevus [Not Recovered/Not Resolved]
